FAERS Safety Report 14969598 (Version 2)
Quarter: 2021Q2

REPORT INFORMATION
  Report Type: Spontaneous
  Country: US (occurrence: US)
  Receive Date: 20180604
  Receipt Date: 20210406
  Transmission Date: 20210716
  Serious: Yes (Other)
  Sender: FDA-Public Use
  Company Number: US-OTSUKA-2017_023416

PATIENT
  Age: 48 Year
  Sex: Female
  Weight: 62.58 kg

DRUGS (1)
  1. SAMSCA [Suspect]
     Active Substance: TOLVAPTAN
     Indication: HYPONATRAEMIA
     Dosage: 1 DF, BIW (TWICE A WEEK)
     Route: 048
     Dates: start: 201710

REACTIONS (7)
  - Confusional state [Unknown]
  - Constipation [Unknown]
  - Hypertension [Unknown]
  - Dry mouth [Unknown]
  - Thirst [Unknown]
  - Inappropriate schedule of product administration [Unknown]
  - Bipolar disorder [Unknown]

NARRATIVE: CASE EVENT DATE: 20171018
